FAERS Safety Report 12801906 (Version 1)
Quarter: 2016Q3

REPORT INFORMATION
  Report Type: Spontaneous
  Country: US (occurrence: US)
  Receive Date: 20160930
  Receipt Date: 20160930
  Transmission Date: 20161109
  Serious: No
  Sender: FDA-Public Use
  Company Number: None

PATIENT
  Age: 60 Year
  Sex: Female

DRUGS (2)
  1. NINLARO [Suspect]
     Active Substance: IXAZOMIB
     Indication: PLASMA CELL MYELOMA
  2. NINLARO [Suspect]
     Active Substance: IXAZOMIB
     Indication: BREAST CANCER

REACTIONS (2)
  - Condition aggravated [None]
  - Plasma cell myeloma [None]

NARRATIVE: CASE EVENT DATE: 20160922
